FAERS Safety Report 8910236 (Version 2)
Quarter: 2012Q4

REPORT INFORMATION
  Report Type: Report from Study
  Country: JP (occurrence: JP)
  Receive Date: 20121115
  Receipt Date: 20121231
  Transmission Date: 20130627
  Serious: Yes (Hospitalization)
  Sender: FDA-Public Use
  Company Number: JP-VERTEX PHARMACEUTICAL INC.-2012-024453

PATIENT
  Age: 60 Year
  Sex: Female

DRUGS (5)
  1. VX-950 (TELAPREVIR) [Suspect]
     Indication: CHRONIC HEPATITIS C
     Dosage: 2250 mg, qd
     Route: 048
     Dates: start: 20120920, end: 20120924
  2. RIBAVIRIN [Suspect]
     Indication: CHRONIC HEPATITIS C
     Dosage: 800 mg, qd
     Route: 048
     Dates: start: 20120920, end: 20120924
  3. PEGINTERFERON ALFA-2B [Suspect]
     Indication: CHRONIC HEPATITIS C
     Dosage: 1.5 ?g/kg, weekly
     Route: 058
     Dates: start: 20120920, end: 20120924
  4. CALONAL [Concomitant]
     Dosage: 400 mg, prn
     Route: 048
     Dates: start: 20120920, end: 20120924
  5. PURSENNID /00142207/ [Concomitant]
     Dosage: 12 mg, prn
     Route: 048
     Dates: start: 20120922, end: 20120924

REACTIONS (1)
  - Rash [Recovered/Resolved]
